FAERS Safety Report 7638918-9 (Version None)
Quarter: 2011Q3

REPORT INFORMATION
  Report Type: 
  Country: None (occurrence: None)
  Receive Date: 20110721
  Receipt Date: 20110707
  Transmission Date: 20111222
  Serious: Yes (Other)
  Sender: FDA-Public Use
  Company Number: TPA2011A03816

PATIENT
  Age: 76 Year
  Sex: Male

DRUGS (3)
  1. METFORMIN HCL [Concomitant]
  2. DEFLAZACORT [Concomitant]
  3. ACTOS [Suspect]
     Indication: DIABETES MELLITUS
     Dosage: 30 MG ; 45 MG

REACTIONS (1)
  - BLADDER CANCER [None]
